FAERS Safety Report 4927500-X (Version None)
Quarter: 2006Q1

REPORT INFORMATION
  Report Type: 
  Country: None (occurrence: None)
  Receive Date: 20060228
  Receipt Date: 20050805
  Transmission Date: 20060701
  Serious: Yes (Hospitalization)
  Sender: FDA-Public Use
  Company Number: US-MERCK-0508USA01453

PATIENT
  Age: 44 Year
  Sex: Male
  Weight: 131 kg

DRUGS (9)
  1. VIOXX [Suspect]
     Indication: OSTEOARTHRITIS
     Route: 048
     Dates: start: 20030530
  2. GLUCOPHAGE [Concomitant]
     Route: 048
  3. ACTOS [Concomitant]
     Route: 048
  4. DIOVAN [Concomitant]
     Route: 048
     Dates: end: 20031101
  5. ZYRTEC [Concomitant]
     Route: 048
  6. VITAMIN E [Concomitant]
     Route: 048
  7. ASCORBIC ACID [Concomitant]
     Route: 048
  8. ZINC (UNSPECIFIED) [Concomitant]
     Route: 048
  9. AMARYL [Concomitant]
     Route: 048

REACTIONS (7)
  - ACUTE MYOCARDIAL INFARCTION [None]
  - BUNDLE BRANCH BLOCK RIGHT [None]
  - CHEST PAIN [None]
  - CORONARY ARTERY DISEASE [None]
  - DIARRHOEA [None]
  - HYPERTENSION [None]
  - HYPOAESTHESIA [None]
